FAERS Safety Report 12467975 (Version 3)
Quarter: 2017Q4

REPORT INFORMATION
  Report Type: Spontaneous
  Country: US (occurrence: US)
  Receive Date: 20160615
  Receipt Date: 20171221
  Transmission Date: 20180320
  Serious: Yes (Hospitalization, Other)
  Sender: FDA-Public Use
  Company Number: US-PFIZER INC-2016299886

PATIENT
  Age: 71 Year
  Sex: Female
  Weight: 47.17 kg

DRUGS (3)
  1. XELJANZ [Suspect]
     Active Substance: TOFACITINIB CITRATE
     Indication: SCLERODERMA
  2. XELJANZ [Suspect]
     Active Substance: TOFACITINIB CITRATE
     Indication: RHEUMATOID ARTHRITIS
     Dosage: 5 MG, 2X/DAY
  3. PERCOCET [Concomitant]
     Active Substance: ACETAMINOPHEN\OXYCODONE HYDROCHLORIDE
     Indication: PAIN
     Dosage: UNK, 2X/DAY  [OXYCODONE HYDROCHLORIDE 10]/[PARACETAMOL 325]
     Route: 048

REACTIONS (4)
  - Pulmonary mycosis [Unknown]
  - Cryptococcosis [Unknown]
  - Pneumonia [Unknown]
  - Blood potassium decreased [Unknown]
